FAERS Safety Report 9628302 (Version 1)
Quarter: 2013Q4

REPORT INFORMATION
  Report Type: Spontaneous
  Country: US (occurrence: US)
  Receive Date: 20131017
  Receipt Date: 20131017
  Transmission Date: 20140711
  Serious: Yes (Other)
  Sender: FDA-Public Use
  Company Number: US-BRISTOL-MYERS SQUIBB COMPANY-19510791

PATIENT
  Age: 68 Year
  Sex: Male

DRUGS (5)
  1. ELIQUIS [Suspect]
     Dates: start: 201306
  2. POTASSIUM [Concomitant]
  3. LASIX [Concomitant]
  4. LISINOPRIL [Concomitant]
  5. CARDIZEM [Concomitant]

REACTIONS (2)
  - Rectal haemorrhage [Unknown]
  - Gastrointestinal angiodysplasia [Unknown]
